FAERS Safety Report 5412728-5 (Version None)
Quarter: 2007Q3

REPORT INFORMATION
  Report Type: 
  Country: None (occurrence: None)
  Receive Date: 20070813
  Receipt Date: 20070806
  Transmission Date: 20080115
  Serious: Yes (Other)
  Sender: FDA-Public Use
  Company Number: US-AMGEN-STX233301

PATIENT
  Sex: Female
  Weight: 93.1 kg

DRUGS (11)
  1. ENBREL [Suspect]
     Indication: RHEUMATOID ARTHRITIS
     Route: 065
     Dates: start: 19990301
  2. METHOTREXATE [Concomitant]
     Dates: start: 19940505, end: 20060601
  3. MOTRIN [Concomitant]
  4. RELAFEN [Concomitant]
  5. EFFEXOR [Concomitant]
  6. ATENOLOL [Concomitant]
  7. LIPITOR [Concomitant]
  8. DETROL [Concomitant]
  9. ORUVAIL [Concomitant]
  10. PAXIL [Concomitant]
  11. PLAQUENIL [Concomitant]
     Dates: start: 19930212, end: 20031201

REACTIONS (1)
  - SMALL CELL LUNG CANCER METASTATIC [None]
